FAERS Safety Report 6664141-0 (Version None)
Quarter: 2010Q2

REPORT INFORMATION
  Report Type: 
  Country: None (occurrence: None)
  Receive Date: 20100401
  Receipt Date: 20100326
  Transmission Date: 20101027
  Serious: Yes (Death)
  Sender: FDA-Public Use
  Company Number: B0643312A

PATIENT
  Age: 51 Year
  Sex: Female

DRUGS (4)
  1. BUSULFEX [Suspect]
     Dosage: 4MGK PER DAY
     Route: 065
  2. FLUDARABINE PHOSPHATE [Concomitant]
     Dosage: 30MGM2 PER DAY
     Route: 065
  3. ALEMTUZUMAB [Concomitant]
     Dosage: 20MG PER DAY
     Route: 065
  4. MYCOPHENOLATE MOFETIL [Concomitant]
     Indication: PROPHYLAXIS AGAINST GRAFT VERSUS HOST DISEASE
     Route: 065

REACTIONS (2)
  - ADENOVIRUS INFECTION [None]
  - GRAFT VERSUS HOST DISEASE [None]
